FAERS Safety Report 25192186 (Version 1)
Quarter: 2025Q2

REPORT INFORMATION
  Report Type: Spontaneous
  Country: US (occurrence: None)
  Receive Date: 20250413
  Receipt Date: 20250413
  Transmission Date: 20250716
  Serious: Yes (Other)
  Sender: FDA-CTU
  Company Number: None

PATIENT
  Age: 53 Year
  Sex: Female
  Weight: 101.25 kg

DRUGS (5)
  1. KETAMINE [Suspect]
     Active Substance: KETAMINE
     Indication: Depression
     Route: 050
     Dates: start: 20250409, end: 20250409
  2. CYMBALTA [Concomitant]
     Active Substance: DULOXETINE HYDROCHLORIDE
  3. WELLBUTRIN [Concomitant]
     Active Substance: BUPROPION HYDROCHLORIDE
  4. IBUPROFEN [Concomitant]
     Active Substance: IBUPROFEN
  5. Vitamin patches [Concomitant]

REACTIONS (5)
  - Chemical burn of oral cavity [None]
  - Oral infection [None]
  - Mouth haemorrhage [None]
  - Mouth injury [None]
  - Oral pain [None]

NARRATIVE: CASE EVENT DATE: 20250409
